FAERS Safety Report 11970374 (Version 1)
Quarter: 2016Q1

REPORT INFORMATION
  Report Type: Report from Study
  Country: US (occurrence: US)
  Receive Date: 20160128
  Receipt Date: 20160128
  Transmission Date: 20160526
  Serious: No
  Sender: FDA-Public Use
  Company Number: US-ABBVIE-15K-163-1388758-00

PATIENT
  Age: 39 Year
  Sex: Female
  Weight: 53.57 kg

DRUGS (4)
  1. HUMIRA [Suspect]
     Active Substance: ADALIMUMAB
     Route: 058
     Dates: start: 20150501
  2. HUMIRA [Suspect]
     Active Substance: ADALIMUMAB
     Dosage: SECOND DOSE
     Route: 058
     Dates: start: 20150417, end: 20150417
  3. LORAZEPAM. [Concomitant]
     Active Substance: LORAZEPAM
     Indication: INSOMNIA
  4. HUMIRA [Suspect]
     Active Substance: ADALIMUMAB
     Indication: CROHN^S DISEASE
     Dosage: LOADING DOSE
     Route: 058
     Dates: start: 20150403, end: 20150403

REACTIONS (6)
  - Oropharyngeal pain [Recovered/Resolved]
  - Pharyngitis streptococcal [Recovered/Resolved]
  - Extra dose administered [Not Recovered/Not Resolved]
  - Ear pain [Recovered/Resolved]
  - Laceration [Recovering/Resolving]
  - Localised infection [Not Recovered/Not Resolved]

NARRATIVE: CASE EVENT DATE: 201504
